FAERS Safety Report 17171957 (Version 1)
Quarter: 2019Q4

REPORT INFORMATION
  Report Type: Report from Study
  Country: GB (occurrence: GB)
  Receive Date: 20191219
  Receipt Date: 20191219
  Transmission Date: 20200122
  Serious: Yes (Other)
  Sender: FDA-Public Use
  Company Number: NVSC2019GB010473

PATIENT
  Sex: Female

DRUGS (1)
  1. ERELZI [Suspect]
     Active Substance: ETANERCEPT-SZZS
     Indication: PSORIATIC ARTHROPATHY
     Dosage: 50 MG, QW
     Route: 065
     Dates: start: 20190920

REACTIONS (6)
  - Liver function test abnormal [Unknown]
  - Pain [Unknown]
  - Renal impairment [Unknown]
  - Drug ineffective [Unknown]
  - Mobility decreased [Unknown]
  - Injection site erythema [Unknown]
